FAERS Safety Report 8481343-1 (Version None)
Quarter: 2012Q2

REPORT INFORMATION
  Report Type: 
  Country: None (occurrence: None)
  Receive Date: 20120622
  Receipt Date: 20110930
  Transmission Date: 20120825
  Serious: Yes (Hospitalization)
  Sender: FDA-Public Use
  Company Number: SK-023564

PATIENT
  Age: 49 Year
  Sex: Male

DRUGS (2)
  1. PREDNISONE TAB [Suspect]
     Indication: CHRONIC LYMPHOCYTIC LEUKAEMIA REFRACTORY
     Dosage: (60 MILLIGRAM)
     Route: 048
     Dates: start: 20110629
  2. CHLORAMBUCIL (CHLORAMBUCIL) [Suspect]
     Indication: CHRONIC LYMPHOCYTIC LEUKAEMIA REFRACTORY
     Dosage: (16 MILLIGRAM)
     Route: 048
     Dates: start: 20110629

REACTIONS (1)
  - ANAEMIA HAEMOLYTIC AUTOIMMUNE [None]
